FAERS Safety Report 17548515 (Version 3)
Quarter: 2020Q1

REPORT INFORMATION
  Report Type: Spontaneous
  Country: BR (occurrence: BR)
  Receive Date: 20200317
  Receipt Date: 20200327
  Transmission Date: 20200409
  Serious: Yes (Other)
  Sender: FDA-Public Use
  Company Number: BR-SA-2020SA065279

PATIENT
  Age: 18 Year
  Sex: Male

DRUGS (3)
  1. DUPIXENT [Suspect]
     Active Substance: DUPILUMAB
     Dosage: UNK
     Dates: start: 202003
  2. DUPIXENT [Suspect]
     Active Substance: DUPILUMAB
     Dosage: MAINTENANCE DOSE
     Dates: start: 2019, end: 2020
  3. DUPIXENT [Suspect]
     Active Substance: DUPILUMAB
     Dosage: UNK, 1X, ATTACK DOSE
     Dates: start: 2019, end: 2019

REACTIONS (2)
  - Measles [Recovered/Resolved]
  - Decreased immune responsiveness [Recovered/Resolved]

NARRATIVE: CASE EVENT DATE: 202003
